FAERS Safety Report 21183036 (Version 4)
Quarter: 2022Q4

REPORT INFORMATION
  Report Type: Report from Study
  Country: BR (occurrence: BR)
  Receive Date: 20220808
  Receipt Date: 20221129
  Transmission Date: 20230113
  Serious: Yes (Other)
  Sender: FDA-Public Use
  Company Number: BR-NOVARTISPH-NVSC2022BR178242

PATIENT
  Age: 38 Year
  Sex: Female
  Weight: 53 kg

DRUGS (3)
  1. ANASTROZOLE [Suspect]
     Active Substance: ANASTROZOLE
     Indication: Hormone therapy
     Dosage: UNK UNK, QD
     Route: 048
     Dates: start: 202103, end: 202207
  2. ZOLEDRONIC ACID [Suspect]
     Active Substance: ZOLEDRONIC ACID
     Indication: Metastases to bone
     Dosage: UNK (EVERY 21 DAYS) (INTRAVENOUS SERUM THERAPY)
     Route: 042
     Dates: start: 20210717, end: 20220606
  3. ABEMACICLIB [Suspect]
     Active Substance: ABEMACICLIB
     Indication: Metastases to bone
     Dosage: UNK, Q12H
     Route: 048
     Dates: start: 20211023, end: 202207

REACTIONS (17)
  - Metastases to central nervous system [Not Recovered/Not Resolved]
  - Metastases to bone [Unknown]
  - Malignant neoplasm progression [Unknown]
  - Metastases to liver [Not Recovered/Not Resolved]
  - Metastases to lung [Not Recovered/Not Resolved]
  - Syncope [Unknown]
  - Seizure [Recovered/Resolved]
  - Seizure [Recovered/Resolved]
  - Seizure [Recovered/Resolved]
  - Pulmonary mass [Unknown]
  - Hepatic mass [Unknown]
  - Hepatic steatosis [Unknown]
  - Spinal osteoarthritis [Unknown]
  - HER2 protein overexpression [Unknown]
  - Breast fibrosis [Unknown]
  - Fibrocystic breast disease [Unknown]
  - Breast calcifications [Unknown]

NARRATIVE: CASE EVENT DATE: 20220619
